FAERS Safety Report 18368976 (Version 1)
Quarter: 2020Q4

REPORT INFORMATION
  Report Type: Spontaneous
  Country: IT (occurrence: IT)
  Receive Date: 20201011
  Receipt Date: 20201011
  Transmission Date: 20210114
  Serious: Yes (Life-Threatening, Hospitalization, Other)
  Sender: FDA-Public Use
  Company Number: IT-PBT-000014

PATIENT
  Age: 17 Year

DRUGS (7)
  1. PYRAZINAMIDE. [Interacting]
     Active Substance: PYRAZINAMIDE
     Indication: PULMONARY TUBERCULOSIS
     Route: 065
  2. ISONIAZID. [Interacting]
     Active Substance: ISONIAZID
     Indication: PULMONARY TUBERCULOSIS
     Route: 065
  3. RIFAMPICIN [Interacting]
     Active Substance: RIFAMPIN
     Indication: PULMONARY TUBERCULOSIS
     Route: 065
  4. TACROLIMUS. [Suspect]
     Active Substance: TACROLIMUS
     Indication: PROPHYLAXIS AGAINST TRANSPLANT REJECTION
     Route: 065
  5. ETHAMBUTOL [Interacting]
     Active Substance: ETHAMBUTOL HYDROCHLORIDE
     Indication: PULMONARY TUBERCULOSIS
     Route: 065
  6. MYCOPHENOLATE MOFETIL. [Suspect]
     Active Substance: MYCOPHENOLATE MOFETIL
     Indication: HEPATITIS
     Route: 065
  7. MYCOPHENOLATE MOFETIL. [Suspect]
     Active Substance: MYCOPHENOLATE MOFETIL
     Indication: FIBROSIS
     Route: 065

REACTIONS (7)
  - Arteriovenous malformation [Recovered/Resolved]
  - Product use in unapproved indication [Unknown]
  - Drug interaction [Unknown]
  - Drug level decreased [Unknown]
  - Pulmonary tuberculosis [Recovered/Resolved]
  - Drug-induced liver injury [Recovered/Resolved]
  - Transplant rejection [Recovered/Resolved]
